FAERS Safety Report 9306892 (Version 2)
Quarter: 2013Q2

REPORT INFORMATION
  Report Type: Spontaneous
  Country: US (occurrence: US)
  Receive Date: 20130523
  Receipt Date: 20130610
  Transmission Date: 20140414
  Serious: Yes (Other)
  Sender: FDA-Public Use
  Company Number: PHHY2013US050655

PATIENT
  Age: 51 Year
  Sex: Male

DRUGS (1)
  1. BUPROPION [Suspect]
     Route: 045

REACTIONS (11)
  - Serotonin syndrome [Unknown]
  - Drug abuse [Unknown]
  - Hallucination [Unknown]
  - Muscle spasms [Unknown]
  - Hyperhidrosis [Unknown]
  - Hyperreflexia [Unknown]
  - Mydriasis [Unknown]
  - Myoclonus [Unknown]
  - Tachycardia [Unknown]
  - Tremor [Unknown]
  - Wrong technique in drug usage process [Unknown]
